FAERS Safety Report 18042343 (Version 3)
Quarter: 2020Q3

REPORT INFORMATION
  Report Type: Spontaneous
  Country: ES (occurrence: ES)
  Receive Date: 20200720
  Receipt Date: 20200810
  Transmission Date: 20201103
  Serious: Yes (Death, Life-Threatening, Hospitalization, Other)
  Sender: FDA-Public Use
  Company Number: ES-AUROBINDO-AUR-APL-2020-036134

PATIENT
  Age: 41 Year
  Sex: Male
  Weight: 84 kg

DRUGS (4)
  1. TRAMADOL+PARACETAMOL 37.5MG/325 MG FILM COATED TABLET [Suspect]
     Active Substance: ACETAMINOPHEN\TRAMADOL
     Dosage: TAKEN BETWEEN 6 AND 12 TABLETS/DAY
     Route: 065
     Dates: start: 2014, end: 2016
  2. TRAMADOL+PARACETAMOL 37.5MG/325 MG FILM COATED TABLET [Suspect]
     Active Substance: ACETAMINOPHEN\TRAMADOL
     Indication: MUSCULOSKELETAL DISORDER
     Dosage: TOOK ONLY SPORADICALLY UNK
     Route: 065
     Dates: start: 2011, end: 2014
  3. VENLAFAXINE [Suspect]
     Active Substance: VENLAFAXINE HYDROCHLORIDE
     Indication: ADJUSTMENT DISORDER WITH DEPRESSED MOOD
     Dosage: 150 MILLIGRAM, ONCE A DAY
     Route: 065
     Dates: start: 201510
  4. DIAZEPAM. [Concomitant]
     Active Substance: DIAZEPAM
     Indication: PRODUCT USED FOR UNKNOWN INDICATION
     Dosage: 2 MILLIGRAM, ONCE A DAY (OCASIONALLY 2 MG AT NIGHT)
     Route: 065

REACTIONS (20)
  - Accident at work [Fatal]
  - Skull fractured base [Fatal]
  - Pulse absent [Fatal]
  - Analgesic drug level above therapeutic [Fatal]
  - Serotonin syndrome [Fatal]
  - Hypotension [Fatal]
  - Toxicity to various agents [Fatal]
  - Drug abuse [Fatal]
  - Pulmonary contusion [Fatal]
  - Bradycardia [Fatal]
  - Dizziness [Fatal]
  - Confusional state [Fatal]
  - Ear haemorrhage [Fatal]
  - Upper limb fracture [Fatal]
  - Craniocerebral injury [Fatal]
  - Forearm fracture [Fatal]
  - Postmortem blood drug level increased [Fatal]
  - Cardiac arrest [Fatal]
  - Drug interaction [Fatal]
  - Fall [Fatal]

NARRATIVE: CASE EVENT DATE: 20160404
